FAERS Safety Report 19140438 (Version 3)
Quarter: 2021Q2

REPORT INFORMATION
  Report Type: Report from Study
  Country: GB (occurrence: GB)
  Receive Date: 20210415
  Receipt Date: 20210505
  Transmission Date: 20210717
  Serious: Yes (Other)
  Sender: FDA-Public Use
  Company Number: GB-GLAXOSMITHKLINE-GB2021080976

PATIENT
  Age: 76 Year
  Sex: Male

DRUGS (12)
  1. DUODOPA [Suspect]
     Active Substance: CARBIDOPA\LEVODOPA
     Dosage: UNK (20MG/5MG;  MORNING DOSE 1.8+3ML; CONTINUOUS RATE 0.8ML; EXTRA DOSE 0.5ML,16HRS)
     Route: 050
     Dates: start: 20210322, end: 202103
  2. RASAGILINE. [Concomitant]
     Active Substance: RASAGILINE
     Indication: PARKINSON^S DISEASE
     Dosage: 1 MG, QD
     Route: 048
  3. DUODOPA [Suspect]
     Active Substance: CARBIDOPA\LEVODOPA
     Dosage: UNK (MORNING DOSE: 4.8ML, CONTINUOUS RATE: 0.8ML, EXTRA DOSE: 0.5ML)
     Route: 050
     Dates: start: 202103, end: 2021
  4. ROPINIROLE HYDROCHLORIDE. [Suspect]
     Active Substance: ROPINIROLE HYDROCHLORIDE
     Indication: PARKINSON^S DISEASE
     Dosage: 4 MG 5D
     Route: 048
  5. DUODOPA [Suspect]
     Active Substance: CARBIDOPA\LEVODOPA
     Indication: PARKINSON^S DISEASE
     Dosage: UNK (MORNING DOSE: 4.7ML, CONTINUOUS RATE: 1.8ML, EXTRA DOSE: 0.5ML, 16HRS)
     Route: 050
     Dates: start: 2021
  6. DUODOPA [Suspect]
     Active Substance: CARBIDOPA\LEVODOPA
     Dosage: UNK (MORNING DOSE: 4.7ML, CONTINUOUS RATE: 1.8ML, EXTRA DOSE: 0.5ML, 16HRS)
     Route: 050
     Dates: start: 2021
  7. DUODOPA [Suspect]
     Active Substance: CARBIDOPA\LEVODOPA
     Dosage: UNK (MORNING DOSE: 4.8ML, CONTINUOUS RATE: 0.8ML, EXTRA DOSE: 0.5ML)
     Route: 050
     Dates: start: 202103, end: 2021
  8. MADOPAR [Concomitant]
     Active Substance: BENSERAZIDE HYDROCHLORIDE\LEVODOPA
     Indication: PARKINSON^S DISEASE
     Dosage: UNK UNK, TID (3 TIMES OVERNIGHT, 50/12.5MG)
     Route: 048
  9. ROPINIROLE HYDROCHLORIDE. [Suspect]
     Active Substance: ROPINIROLE HYDROCHLORIDE
     Dosage: 4 MG, 6D
     Route: 048
  10. MADOPAR [Concomitant]
     Active Substance: BENSERAZIDE HYDROCHLORIDE\LEVODOPA
     Dosage: UNK UNK, BID (BD OVERNIGHT)
     Route: 048
  11. ROPINIROLE HYDROCHLORIDE. [Suspect]
     Active Substance: ROPINIROLE HYDROCHLORIDE
     Dosage: UNK
     Route: 048
  12. DUODOPA [Suspect]
     Active Substance: CARBIDOPA\LEVODOPA
     Dosage: UNK (20MG/5MG;  MORNING DOSE 1.8+3ML; CONTINUOUS RATE 0.8ML; EXTRA DOSE 0.5ML,16HRS)
     Route: 050
     Dates: start: 20210322, end: 202103

REACTIONS (11)
  - Freezing phenomenon [Not Recovered/Not Resolved]
  - On and off phenomenon [Not Recovered/Not Resolved]
  - Dyskinesia [Not Recovered/Not Resolved]
  - Rash [Recovered/Resolved]
  - Muscle rigidity [Not Recovered/Not Resolved]
  - Pruritus [Recovered/Resolved]
  - Tremor [Recovered/Resolved]
  - Groin pain [Not Recovered/Not Resolved]
  - Hyperkinesia [Not Recovered/Not Resolved]
  - Dystonia [Not Recovered/Not Resolved]
  - Abdominal pain upper [Not Recovered/Not Resolved]

NARRATIVE: CASE EVENT DATE: 20210325
